FAERS Safety Report 19987966 (Version 1)
Quarter: 2021Q4

REPORT INFORMATION
  Report Type: Spontaneous
  Country: SI (occurrence: SI)
  Receive Date: 20211023
  Receipt Date: 20211023
  Transmission Date: 20220303
  Serious: Yes (Life-Threatening, Hospitalization)
  Sender: FDA-Public Use
  Company Number: SI-ROCHE-2942065

PATIENT
  Sex: Male

DRUGS (1)
  1. HEMLIBRA [Suspect]
     Active Substance: EMICIZUMAB-KXWH
     Indication: Factor VIII deficiency
     Route: 065

REACTIONS (3)
  - Fall [Unknown]
  - Lower limb fracture [Unknown]
  - Multiple injuries [Unknown]

NARRATIVE: CASE EVENT DATE: 20211020
